FAERS Safety Report 7451287-2 (Version None)
Quarter: 2011Q2

REPORT INFORMATION
  Report Type: 
  Country: None (occurrence: None)
  Receive Date: 20110502
  Receipt Date: 20110427
  Transmission Date: 20111010
  Serious: Yes (Hospitalization, Other)
  Sender: FDA-Public Use
  Company Number: BE-ABBOTT-11P-013-0722287-00

PATIENT
  Sex: Male

DRUGS (2)
  1. HUMIRA [Suspect]
     Indication: PSORIATIC ARTHROPATHY
     Dates: start: 20090601, end: 20110201
  2. HUMIRA [Suspect]
     Dates: start: 20110329

REACTIONS (1)
  - INTUSSUSCEPTION [None]
